FAERS Safety Report 24245417 (Version 2)
Quarter: 2024Q4

REPORT INFORMATION
  Report Type: Spontaneous
  Country: FR (occurrence: FR)
  Receive Date: 20240824
  Receipt Date: 20241115
  Transmission Date: 20250114
  Serious: Yes (Disabling, Other)
  Sender: ALEXION PHARMACEUTICALS
  Company Number: None

PATIENT
  Age: 79 Year

DRUGS (1)
  1. CALQUENCE [Suspect]
     Active Substance: ACALABRUTINIB
     Indication: Chronic lymphocytic leukaemia
     Dosage: 100MG 2FOIS/J

REACTIONS (5)
  - Epistaxis [Recovered/Resolved]
  - Haemorrhagic diathesis [Recovered/Resolved with Sequelae]
  - Retinal detachment [Recovered/Resolved with Sequelae]
  - Vitreous haemorrhage [Recovered/Resolved with Sequelae]
  - Eye haematoma [Recovered/Resolved]
